FAERS Safety Report 17682961 (Version 1)
Quarter: 2020Q2

REPORT INFORMATION
  Report Type: Report from Study
  Country: FR (occurrence: FR)
  Receive Date: 20200420
  Receipt Date: 20200420
  Transmission Date: 20200714
  Serious: Yes (Death)
  Sender: FDA-Public Use
  Company Number: FR-BEH-2020115083

PATIENT
  Age: 8 Year

DRUGS (13)
  1. HUMAN IMMUNOGLOBULIN (GENERIC) [Suspect]
     Active Substance: HUMAN IMMUNOGLOBULIN G
     Indication: COLITIS
  2. RITUXIMAB. [Suspect]
     Active Substance: RITUXIMAB
     Indication: DERMATOMYOSITIS
  3. METHOTREXATE. [Suspect]
     Active Substance: METHOTREXATE
     Indication: DERMATOMYOSITIS
  4. HUMAN IMMUNOGLOBULIN (GENERIC) [Suspect]
     Active Substance: HUMAN IMMUNOGLOBULIN G
     Indication: DERMATOMYOSITIS
     Dosage: 2ND ABDOMINAL EVENT
     Route: 042
  5. RITUXIMAB. [Suspect]
     Active Substance: RITUXIMAB
     Indication: PANCREATITIS
     Dosage: 1ST EVENT
     Route: 065
  6. HUMAN IMMUNOGLOBULIN (GENERIC) [Suspect]
     Active Substance: HUMAN IMMUNOGLOBULIN G
     Indication: PANCREATIC NECROSIS
     Dosage: 3RD ABDOMINAL EVENT
     Route: 042
  7. HUMAN IMMUNOGLOBULIN (GENERIC) [Suspect]
     Active Substance: HUMAN IMMUNOGLOBULIN G
     Indication: HEPATITIS
  8. METHOTREXATE. [Suspect]
     Active Substance: METHOTREXATE
     Indication: PANCREATITIS
     Dosage: 1ST EVENT
     Route: 065
  9. METHOTREXATE. [Suspect]
     Active Substance: METHOTREXATE
     Indication: PANCREATIC NECROSIS
  10. RITUXIMAB. [Suspect]
     Active Substance: RITUXIMAB
     Indication: PANCREATIC NECROSIS
  11. HUMAN IMMUNOGLOBULIN (GENERIC) [Suspect]
     Active Substance: HUMAN IMMUNOGLOBULIN G
     Indication: PANCREATITIS
     Dosage: 1ST ABDOMINAL EVENT
     Route: 042
  12. MYCOPHENOLIC ACID. [Suspect]
     Active Substance: MYCOPHENOLIC ACID
     Indication: COLITIS
     Route: 065
  13. MYCOPHENOLIC ACID. [Suspect]
     Active Substance: MYCOPHENOLIC ACID
     Indication: DERMATOMYOSITIS

REACTIONS (4)
  - Drug ineffective for unapproved indication [Unknown]
  - Product use in unapproved indication [Fatal]
  - Drug ineffective for unapproved indication [Fatal]
  - Product use in unapproved indication [Unknown]
